FAERS Safety Report 10592443 (Version 1)
Quarter: 2014Q4

REPORT INFORMATION
  Report Type: Spontaneous
  Country: FR (occurrence: None)
  Receive Date: 20141117
  Receipt Date: 20141117
  Transmission Date: 20150529
  Serious: Yes (Other)
  Sender: FDA-Public Use
  Company Number: IMP_08148_2014

PATIENT
  Age: 11 Year
  Sex: Male

DRUGS (1)
  1. MINOCYCLINE [Suspect]
     Active Substance: MINOCYCLINE\MINOCYCLINE HYDROCHLORIDE
     Indication: INFECTIVE PULMONARY EXACERBATION OF CYSTIC FIBROSIS

REACTIONS (5)
  - Eosinophilia [None]
  - Pleural effusion [None]
  - Pyrexia [None]
  - Myocarditis [None]
  - Congestive cardiomyopathy [None]
